FAERS Safety Report 5045841-5 (Version None)
Quarter: 2006Q2

REPORT INFORMATION
  Report Type: 
  Country: None (occurrence: None)
  Receive Date: 20060601
  Receipt Date: 20060414
  Transmission Date: 20061013
  Serious: No
  Sender: FDA-Public Use
  Company Number: 2006-BP-04268BP

PATIENT
  Age: 86 Year
  Sex: Male

DRUGS (2)
  1. SPIRIVA [Suspect]
     Indication: LUNG DISORDER
     Dosage: (18 MCG), IH
     Route: 055
     Dates: start: 20050101, end: 20050101
  2. ALBUTEROL SPIROS [Concomitant]

REACTIONS (1)
  - HEADACHE [None]
